FAERS Safety Report 16501325 (Version 1)
Quarter: 2019Q3

REPORT INFORMATION
  Report Type: Spontaneous
  Country: JP (occurrence: JP)
  Receive Date: 20190701
  Receipt Date: 20190701
  Transmission Date: 20191004
  Serious: Yes (Life-Threatening, Hospitalization)
  Sender: FDA-Public Use
  Company Number: JP-PFIZER INC-2019275987

PATIENT
  Age: 8 Decade
  Sex: Male

DRUGS (1)
  1. RHEUMATREX [Suspect]
     Active Substance: METHOTREXATE SODIUM
     Indication: RHEUMATOID ARTHRITIS
     Route: 048

REACTIONS (4)
  - Overdose [Recovered/Resolved]
  - Stomatitis [Recovered/Resolved]
  - Gastrointestinal disorder [Recovered/Resolved]
  - Neutropenia [Recovered/Resolved]
